APPROVED DRUG PRODUCT: BRIMONIDINE TARTRATE
Active Ingredient: BRIMONIDINE TARTRATE
Strength: 0.15%
Dosage Form/Route: SOLUTION/DROPS;OPHTHALMIC
Application: A215225 | Product #001 | TE Code: AT
Applicant: ALEMBIC PHARMACEUTICALS LTD
Approved: Mar 29, 2023 | RLD: No | RS: No | Type: RX